FAERS Safety Report 5198874-2 (Version None)
Quarter: 2006Q4

REPORT INFORMATION
  Report Type: 
  Country: None (occurrence: None)
  Receive Date: 20060925
  Receipt Date: 20060731
  Transmission Date: 20070319
  Serious: Yes (Hospitalization)
  Sender: FDA-Public Use
  Company Number: US-JNJFOC-20041002674

PATIENT
  Age: 41 Year
  Sex: Female

DRUGS (5)
  1. CONCERTA [Suspect]
     Indication: BIPOLAR DISORDER
     Dosage: ORAL
     Route: 048
     Dates: end: 20040611
  2. CONCERTA [Suspect]
     Indication: BIPOLAR DISORDER
     Dosage: ORAL
     Route: 048
     Dates: start: 20040101
  3. MICARDIS [Concomitant]
  4. GLUCOPHAGE [Concomitant]
  5. ZYPREXA [Concomitant]

REACTIONS (1)
  - BIPOLAR DISORDER [None]
